FAERS Safety Report 24373132 (Version 1)
Quarter: 2024Q3

REPORT INFORMATION
  Report Type: Spontaneous
  Country: US (occurrence: US)
  Receive Date: 20240927
  Receipt Date: 20240927
  Transmission Date: 20241017
  Serious: No
  Sender: Thea Pharma
  Company Number: US-THEA-2023001004

PATIENT
  Age: 32 Year
  Sex: Female

DRUGS (3)
  1. AZASITE [Suspect]
     Active Substance: AZITHROMYCIN MONOHYDRATE
     Indication: Blepharitis
     Dosage: BOTH EYES
     Route: 047
  2. AZASITE [Suspect]
     Active Substance: AZITHROMYCIN MONOHYDRATE
     Indication: Blepharitis
     Dosage: BEDTIME DAILY FOR TWO WEEKS
     Route: 047
  3. VITAMINS [Concomitant]
     Active Substance: VITAMINS
     Indication: Product used for unknown indication

REACTIONS (3)
  - Off label use [Unknown]
  - Product dose omission issue [Unknown]
  - Product packaging quantity issue [Unknown]

NARRATIVE: CASE EVENT DATE: 20230605
